FAERS Safety Report 5730876-7 (Version None)
Quarter: 2008Q2

REPORT INFORMATION
  Report Type: 
  Country: None (occurrence: None)
  Receive Date: 20080507
  Receipt Date: 20080425
  Transmission Date: 20081010
  Serious: Yes (Other)
  Sender: FDA-Public Use
  Company Number: GB-PFIZER INC-2008037526

PATIENT
  Age: 33 Year
  Sex: Female
  Weight: 35 kg

DRUGS (5)
  1. LYRICA [Suspect]
     Indication: NEURALGIA
     Route: 048
     Dates: start: 20080124, end: 20080410
  2. ALENDRONIC ACID [Concomitant]
     Route: 048
  3. CALCICHEW-D3 [Concomitant]
     Route: 048
  4. PAROXETINE HCL [Concomitant]
     Route: 048
  5. PROMETHAZINE [Concomitant]
     Route: 048

REACTIONS (1)
  - NEUTROPENIA [None]
